FAERS Safety Report 9323677 (Version 2)
Quarter: 2014Q1

REPORT INFORMATION
  Report Type: Report from Study
  Country: ES (occurrence: ES)
  Receive Date: 20130603
  Receipt Date: 20140121
  Transmission Date: 20141002
  Serious: Yes (Hospitalization)
  Sender: FDA-Public Use
  Company Number: PHHY2013ES055538

PATIENT
  Age: 73 Year
  Sex: Female

DRUGS (2)
  1. TASIGNA [Suspect]
     Indication: CHRONIC MYELOID LEUKAEMIA
     Dosage: 300 MG, Q12H
     Route: 048
     Dates: start: 200711, end: 200712
  2. TASIGNA [Suspect]
     Dosage: 300 MG, Q12H
     Route: 048
     Dates: end: 20081111

REACTIONS (4)
  - Angina pectoris [Recovered/Resolved]
  - Dyspnoea [Unknown]
  - Pain in extremity [Unknown]
  - Hyperhidrosis [Unknown]
